FAERS Safety Report 6830999-5 (Version None)
Quarter: 2010Q3

REPORT INFORMATION
  Report Type: 
  Country: None (occurrence: None)
  Receive Date: 20100712
  Receipt Date: 20100706
  Transmission Date: 20110219
  Serious: Yes (Other)
  Sender: FDA-Public Use
  Company Number: US-SANOFI-AVENTIS-2010SA039545

PATIENT
  Age: 43 Year
  Sex: Female

DRUGS (13)
  1. ARAVA [Suspect]
     Indication: SERONEGATIVE ARTHRITIS
     Route: 048
     Dates: start: 20060301, end: 20070801
  2. ETANERCEPT [Suspect]
     Indication: SERONEGATIVE ARTHRITIS
     Route: 065
     Dates: start: 20050301, end: 20060301
  3. METHOTREXATE [Suspect]
     Indication: SERONEGATIVE ARTHRITIS
     Route: 048
     Dates: start: 20050101, end: 20060301
  4. METHOTREXATE [Suspect]
     Route: 048
     Dates: start: 20100105
  5. METHOTREXATE [Suspect]
     Route: 048
     Dates: start: 20070901, end: 20091201
  6. ADALIMUMAB [Suspect]
     Indication: SERONEGATIVE ARTHRITIS
     Route: 065
     Dates: start: 20060301, end: 20091201
  7. OMEPRAZOLE [Concomitant]
  8. FOLACIN [Concomitant]
  9. ACETAMINOPHEN [Concomitant]
  10. PREDNISOLONE [Concomitant]
  11. VOLTAREN [Concomitant]
  12. ORUDIS [Concomitant]
  13. CALCICHEW [Concomitant]

REACTIONS (2)
  - CERVIX NEOPLASM [None]
  - COUGH [None]
